FAERS Safety Report 24207115 (Version 6)
Quarter: 2025Q1

REPORT INFORMATION
  Report Type: Spontaneous
  Country: US (occurrence: US)
  Receive Date: 20240813
  Receipt Date: 20250204
  Transmission Date: 20250409
  Serious: Yes (Other)
  Sender: SANOFI AVENTIS
  Company Number: US-SA-2024SA229426

PATIENT
  Age: 73 Year
  Sex: Female

DRUGS (2)
  1. KEVZARA [Suspect]
     Active Substance: SARILUMAB
     Indication: Rheumatoid arthritis
     Dosage: 200 MG, QOW
     Route: 058
     Dates: start: 202407, end: 2024
  2. KEVZARA [Suspect]
     Active Substance: SARILUMAB
     Indication: Polymyalgia rheumatica
     Dosage: 150 MG, QOW
     Route: 058
     Dates: start: 2024

REACTIONS (19)
  - Rheumatoid arthritis [Unknown]
  - Arthralgia [Unknown]
  - Neck pain [Unknown]
  - Back pain [Unknown]
  - Balance disorder [Unknown]
  - Temporomandibular pain and dysfunction syndrome [Unknown]
  - Pain in jaw [Unknown]
  - Fatigue [Unknown]
  - Neutropenia [Unknown]
  - Polymyalgia rheumatica [Unknown]
  - Injection site pain [Unknown]
  - Nasal congestion [Unknown]
  - Blister [Not Recovered/Not Resolved]
  - Skin discomfort [Not Recovered/Not Resolved]
  - Platelet disorder [Not Recovered/Not Resolved]
  - Illness [Unknown]
  - Drug ineffective [Unknown]
  - Off label use [Unknown]
  - Intentional dose omission [Unknown]

NARRATIVE: CASE EVENT DATE: 20240101
